FAERS Safety Report 8465357-3 (Version None)
Quarter: 2012Q2

REPORT INFORMATION
  Report Type: 
  Country: None (occurrence: None)
  Receive Date: 20120626
  Receipt Date: 20120622
  Transmission Date: 20120825
  Serious: Yes (Death)
  Sender: FDA-Public Use
  Company Number: PHHY2012NL054066

PATIENT
  Sex: Female
  Weight: 50 kg

DRUGS (1)
  1. SANDOSTATIN LAR [Suspect]
     Dosage: 20 MG, BIW

REACTIONS (1)
  - DEATH [None]
